FAERS Safety Report 13935829 (Version 1)
Quarter: 2017Q3

REPORT INFORMATION
  Report Type: Spontaneous
  Country: US (occurrence: US)
  Receive Date: 20170903
  Receipt Date: 20170903
  Transmission Date: 20171127
  Serious: Yes (Disabling)
  Sender: FDA-Public Use
  Company Number: None

PATIENT
  Age: 23 Month
  Sex: Male
  Weight: 12.5 kg

DRUGS (20)
  1. KIDS CLAM (MAGNESIUM/CHOLINE/B6/B12) [Concomitant]
  2. VITAMIN D [Concomitant]
     Active Substance: CHOLECALCIFEROL
  3. SPIRULINA [Concomitant]
     Active Substance: SPIRULINA
  4. BERRY POWDER [Concomitant]
  5. NATURANECTAR ULTIMATE BEE PROPOLIS [Concomitant]
  6. CALCIUM [Concomitant]
     Active Substance: CALCIUM
  7. PURE ENCAPSULATIONS COGNITIVE AMINOS [Concomitant]
  8. EYE PROTECTOR [Concomitant]
  9. INTRAKID VITAMIN [Concomitant]
  10. ZINC. [Concomitant]
     Active Substance: ZINC
  11. CIPROFLOXACIN. [Suspect]
     Active Substance: CIPROFLOXACIN
     Indication: NEUTROPENIA
     Dosage: ?          QUANTITY:.5 TABLET(S);?
     Route: 048
     Dates: start: 20170823, end: 20170901
  12. ZOFRAN [Concomitant]
     Active Substance: ONDANSETRON HYDROCHLORIDE
  13. ASHWAGANDHA [Concomitant]
     Active Substance: HERBALS
  14. BACTRIM [Concomitant]
     Active Substance: SULFAMETHOXAZOLE\TRIMETHOPRIM
  15. FISH OIL [Concomitant]
     Active Substance: FISH OIL
  16. TURKEY TAIL MUSHROOM [Concomitant]
  17. AMOXICILLIN. [Concomitant]
     Active Substance: AMOXICILLIN
  18. AGED GARLIC EXTRACT [Concomitant]
  19. TURMERIC [Concomitant]
     Active Substance: HERBALS\TURMERIC
  20. COQ10 [Concomitant]
     Active Substance: UBIDECARENONE

REACTIONS (3)
  - Pain in extremity [None]
  - Gait disturbance [None]
  - Asthenia [None]

NARRATIVE: CASE EVENT DATE: 20170831
